FAERS Safety Report 12402041 (Version 2)
Quarter: 2016Q4

REPORT INFORMATION
  Report Type: Spontaneous
  Country: US (occurrence: US)
  Receive Date: 20160525
  Receipt Date: 20161004
  Transmission Date: 20170207
  Serious: Yes (Other)
  Sender: FDA-Public Use
  Company Number: US-SUNOVION-2016SUN001116

PATIENT
  Age: 97 Year
  Sex: Female
  Weight: 68.48 kg

DRUGS (7)
  1. BUDESONIDE. [Concomitant]
     Active Substance: BUDESONIDE
     Indication: BRONCHITIS CHRONIC
     Dosage: 0.25 MG, BID
     Route: 055
     Dates: start: 201301
  2. ALBUTEROL. [Concomitant]
     Active Substance: ALBUTEROL
     Indication: CHRONIC OBSTRUCTIVE PULMONARY DISEASE
     Dosage: 2 PUFFS EVERY 6 HOURS, AS NEEDED
     Dates: start: 201301
  3. BROVANA [Suspect]
     Active Substance: ARFORMOTEROL TARTRATE
     Indication: EMPHYSEMA
  4. BROVANA [Suspect]
     Active Substance: ARFORMOTEROL TARTRATE
     Indication: BRONCHITIS CHRONIC
     Dosage: 15 MCG/2ML, BID
     Route: 055
     Dates: start: 201301, end: 20160729
  5. BUDESONIDE. [Concomitant]
     Active Substance: BUDESONIDE
     Indication: EMPHYSEMA
  6. FLUTICASONE PROPIONATE. [Concomitant]
     Active Substance: FLUTICASONE PROPIONATE
     Indication: RHINITIS ALLERGIC
     Dosage: 2 PUFFS PER NOSTRIL, QD
     Route: 045
     Dates: start: 201301
  7. PLAVIX [Concomitant]
     Active Substance: CLOPIDOGREL BISULFATE
     Indication: ANTICOAGULANT THERAPY
     Dosage: UNK

REACTIONS (19)
  - Otorrhoea [Unknown]
  - Nausea [Unknown]
  - Pyrexia [Unknown]
  - Drug administration error [Unknown]
  - Basal cell carcinoma [Unknown]
  - Blister [Unknown]
  - Sputum discoloured [Unknown]
  - Productive cough [Unknown]
  - Increased viscosity of bronchial secretion [Unknown]
  - Necrotising ulcerative gingivostomatitis [Unknown]
  - Retching [Unknown]
  - Rash [Unknown]
  - Cough [Unknown]
  - Rhinorrhoea [Unknown]
  - Weight decreased [Unknown]
  - Vomiting [Unknown]
  - Rash generalised [Unknown]
  - Aphonia [Unknown]
  - Haemoptysis [Unknown]

NARRATIVE: CASE EVENT DATE: 201605
